FAERS Safety Report 6592507-6 (Version None)
Quarter: 2010Q1

REPORT INFORMATION
  Report Type: 
  Country: None (occurrence: None)
  Receive Date: 20100221
  Receipt Date: 20091123
  Transmission Date: 20100710
  Serious: No
  Sender: FDA-Public Use
  Company Number: US-ALLERGAN-0914505US

PATIENT
  Age: 61 Year
  Sex: Male
  Weight: 106.58 kg

DRUGS (4)
  1. BOTOX COSMETIC [Suspect]
     Indication: HEADACHE
     Dosage: 100 UNITS, SINGLE
     Route: 030
     Dates: start: 20091016, end: 20091016
  2. BOTOX COSMETIC [Suspect]
     Indication: MIGRAINE
     Dosage: 100 UNITS, SINGLE
     Route: 030
     Dates: start: 20090205, end: 20090205
  3. MAXALT [Concomitant]
     Indication: MIGRAINE
  4. ZOMIG-ZMT [Concomitant]
     Indication: MIGRAINE
     Dosage: 5 MG, VARIES
     Route: 048

REACTIONS (4)
  - INCORRECT STORAGE OF DRUG [None]
  - INJECTION SITE PAIN [None]
  - INJECTION SITE SWELLING [None]
  - WRONG TECHNIQUE IN DRUG USAGE PROCESS [None]
